FAERS Safety Report 8266486-X (Version None)
Quarter: 2012Q2

REPORT INFORMATION
  Report Type: 
  Country: None (occurrence: None)
  Receive Date: 20120406
  Receipt Date: 20120329
  Transmission Date: 20120825
  Serious: Yes (Other)
  Sender: FDA-Public Use
  Company Number: US-ASTRAZENECA-2011SE73507

PATIENT
  Age: 71 Year
  Sex: Female

DRUGS (18)
  1. HYDROCODONE BITARTRATE AND ACETAMINOPHEN [Concomitant]
     Dosage: 10-325 MG 1-2 PILLS EVERY 4-6 HOURS, AS NEEDED
  2. XANAX [Concomitant]
  3. ANTIBIOTICS [Concomitant]
     Dosage: DAILY ONCE A DAY
  4. SIMVASTATIN [Concomitant]
  5. HIZENTRA [Concomitant]
  6. PRILOSEC [Concomitant]
     Route: 048
  7. OMEPRAZOLE MAGNESIUM [Concomitant]
  8. PROVENTIL [Concomitant]
     Dosage: AS NEEDED
  9. VITAMIN D [Concomitant]
     Dosage: 5000 MG
  10. BACTRIM [Concomitant]
     Dosage: 800/160 ONCE A DAY
  11. NEILMED SINUS RINSE [Concomitant]
  12. FLONASE [Concomitant]
     Dosage: 1 X DAILY TWO SPRAYS IN EACH NOSTRIL
     Route: 045
  13. TYLENOL EXTRA STRENGTH PM [Concomitant]
  14. CLARITIN [Concomitant]
  15. DAILY FIBER [Concomitant]
  16. SYMBICORT [Suspect]
     Dosage: 160/4.5 MCG 2 PUFFS TWO TIMES PER DAY
     Route: 055
  17. PAXIL [Concomitant]
  18. PROBIOTIC [Concomitant]

REACTIONS (7)
  - NEOPLASM MALIGNANT [None]
  - MALAISE [None]
  - FUNGAL INFECTION [None]
  - LUNG NEOPLASM MALIGNANT [None]
  - BRONCHITIS [None]
  - SINUSITIS [None]
  - IMMUNODEFICIENCY COMMON VARIABLE [None]
